FAERS Safety Report 5831459-0 (Version None)
Quarter: 2008Q3

REPORT INFORMATION
  Report Type: 
  Country: None (occurrence: None)
  Receive Date: 20080730
  Receipt Date: 20080722
  Transmission Date: 20090109
  Serious: Yes (Disabling)
  Sender: FDA-Public Use
  Company Number: 163-20785-08070149

PATIENT
  Age: 69 Year
  Sex: Female

DRUGS (4)
  1. THALOMID [Suspect]
     Indication: MULTIPLE MYELOMA
     Dosage: 100 MG, 1 IN 1 D, ORAL;  200 MG, 1 IN 1 D, ORAL
     Route: 048
     Dates: start: 20080521, end: 20080625
  2. THALOMID [Suspect]
     Indication: MULTIPLE MYELOMA
     Dosage: 100 MG, 1 IN 1 D, ORAL;  200 MG, 1 IN 1 D, ORAL
     Route: 048
     Dates: start: 20080709
  3. DECADRON [Concomitant]
  4. WARFARIN SODIUM [Concomitant]

REACTIONS (1)
  - PALMAR-PLANTAR ERYTHRODYSAESTHESIA SYNDROME [None]
